FAERS Safety Report 6966164-0 (Version None)
Quarter: 2010Q3

REPORT INFORMATION
  Report Type: 
  Country: None (occurrence: None)
  Receive Date: 20100903
  Receipt Date: 20100825
  Transmission Date: 20110219
  Serious: Yes (Other)
  Sender: FDA-Public Use
  Company Number: GXKR2010PL09652

PATIENT
  Sex: Female
  Weight: 72 kg

DRUGS (1)
  1. METHOTREXATE (NGX) [Suspect]
     Indication: POLYARTHRITIS
     Dosage: 20 MG, UNK
     Route: 058
     Dates: start: 20091217, end: 20100720

REACTIONS (6)
  - ASTHENIA [None]
  - DEPRESSION [None]
  - DIZZINESS [None]
  - NAUSEA [None]
  - SHOCK [None]
  - TRANSAMINASES INCREASED [None]
